FAERS Safety Report 10420491 (Version 1)
Quarter: 2014Q3

REPORT INFORMATION
  Report Type: Spontaneous
  Country: US (occurrence: None)
  Receive Date: 20140708
  Receipt Date: 20140708
  Transmission Date: 20150326
  Serious: Yes (Other)
  Sender: FDA-Public Use
  Company Number: RB-54341-2013

PATIENT
  Sex: Male

DRUGS (3)
  1. GUAIFENESIN W/DEXTROMETHORPHAN [Suspect]
     Active Substance: DEXTROMETHORPHAN\GUAIFENESIN
     Indication: COUGH
     Dosage: 600 MG, TAKES DRUG 3 TIMES A WEEK, TAKING FOR ABOUT 2 YEARS
     Route: 048
  2. GUAIFENESIN W/DEXTROMETHORPHAN [Suspect]
     Active Substance: DEXTROMETHORPHAN\GUAIFENESIN
     Indication: CHRONIC OBSTRUCTIVE PULMONARY DISEASE
     Dosage: 600 MG, TAKES DRUG 3 TIMES A WEEK, TAKING FOR ABOUT 2 YEARS
     Route: 048
  3. GUAIFENESIN W/DEXTROMETHORPHAN [Suspect]
     Active Substance: DEXTROMETHORPHAN\GUAIFENESIN
     Indication: DYSPNOEA
     Dosage: 600 MG, TAKES DRUG 3 TIMES A WEEK, TAKING FOR ABOUT 2 YEARS
     Route: 048

REACTIONS (2)
  - No adverse event [None]
  - Off label use [None]
